FAERS Safety Report 7207280-8 (Version None)
Quarter: 2011Q1

REPORT INFORMATION
  Report Type: 
  Country: None (occurrence: None)
  Receive Date: 20110103
  Receipt Date: 20101222
  Transmission Date: 20110831
  Serious: Yes (Other)
  Sender: FDA-Public Use
  Company Number: JP-ROCHE-750847

PATIENT
  Age: 31 Year
  Sex: Male

DRUGS (14)
  1. VALGANCICLOVIR HCL [Suspect]
     Route: 048
     Dates: start: 20090419, end: 20090918
  2. CLARITHROMYCIN [Concomitant]
     Route: 048
     Dates: start: 20090516
  3. INDAPAMIDE [Concomitant]
     Route: 048
     Dates: start: 20090814
  4. VALGANCICLOVIR HCL [Suspect]
     Route: 048
     Dates: start: 20090417, end: 20090417
  5. ISENTRESS [Concomitant]
     Route: 048
     Dates: start: 20090430
  6. PREZISTA [Suspect]
     Indication: HIV INFECTION
     Route: 048
     Dates: start: 20090424
  7. VALGANCICLOVIR HCL [Suspect]
     Route: 048
     Dates: start: 20090418, end: 20090418
  8. BENAMBAX [Concomitant]
     Route: 055
     Dates: start: 20090602
  9. TRUVADA [Suspect]
     Indication: HIV INFECTION
     Dosage: 1 TABLET DAILY.
     Route: 048
     Dates: start: 20090205, end: 20090209
  10. NORVIR [Suspect]
     Indication: HIV INFECTION
     Route: 048
     Dates: start: 20090424
  11. MYCOBUTIN [Concomitant]
     Route: 048
     Dates: start: 20090516
  12. VALGANCICLOVIR HCL [Suspect]
     Route: 048
     Dates: start: 20090317, end: 20090331
  13. ETHAMBUTOL HYDROCHLORIDE [Concomitant]
     Route: 048
     Dates: start: 20090516
  14. INDAPAMIDE [Concomitant]
     Route: 048
     Dates: start: 20090717, end: 20090813

REACTIONS (6)
  - ATYPICAL MYCOBACTERIAL INFECTION [None]
  - BLOOD TRIGLYCERIDES INCREASED [None]
  - RASH [None]
  - CYTOMEGALOVIRUS CHORIORETINITIS [None]
  - BLOOD URIC ACID INCREASED [None]
  - GASTRIC ULCER [None]
